FAERS Safety Report 4402029-6 (Version None)
Quarter: 2004Q3

REPORT INFORMATION
  Report Type: 
  Country: None (occurrence: None)
  Receive Date: 20040714
  Receipt Date: 20040706
  Transmission Date: 20050211
  Serious: Yes (Hospitalization, Other)
  Sender: FDA-Public Use
  Company Number: US-JNJFOC-20040701445

PATIENT
  Age: 27 Year
  Sex: Female

DRUGS (2)
  1. RISPERDAL CONSTA [Suspect]
     Indication: AGGRESSION
     Dosage: 25 MG, 1 IN 2 WEEK, INTRA-MUSCULAR
     Route: 030
     Dates: start: 20040520, end: 20040520
  2. DEPAKOTE [Concomitant]

REACTIONS (4)
  - CHOLELITHIASIS [None]
  - NEUROLEPTIC MALIGNANT SYNDROME [None]
  - SEPSIS [None]
  - TACHYCARDIA [None]
